FAERS Safety Report 18680101 (Version 2)
Quarter: 2022Q3

REPORT INFORMATION
  Report Type: Spontaneous
  Country: SE (occurrence: SE)
  Receive Date: 20201230
  Receipt Date: 20220914
  Transmission Date: 20221026
  Serious: Yes (Life-Threatening, Hospitalization, Disabling)
  Sender: FDA-Public Use
  Company Number: None

PATIENT
  Age: 29 Year
  Sex: Female
  Weight: 65 kg

DRUGS (6)
  1. HALDOL [Suspect]
     Active Substance: HALOPERIDOL
     Indication: Product used for unknown indication
     Route: 065
     Dates: end: 2017
  2. ZOLPIDEM TARTRATE [Suspect]
     Active Substance: ZOLPIDEM TARTRATE
     Indication: Product used for unknown indication
     Dosage: UNCLEAR TIME INDICATIONS REGARDING START AND STOP TIME
     Route: 065
  3. LITHIUM CITRATE [Suspect]
     Active Substance: LITHIUM CITRATE
     Indication: Product used for unknown indication
     Dosage: 3-4 LITAREX 2008-2020^
     Route: 065
     Dates: end: 2020
  4. ZYPREXA [Suspect]
     Active Substance: OLANZAPINE
     Indication: Product used for unknown indication
     Dosage: UNCLEAR TIME INDICATIONS REGARDING START AND STOP TIME
     Route: 065
  5. LITHIUM SULFATE [Suspect]
     Active Substance: LITHIUM SULFATE
     Indication: Product used for unknown indication
     Dosage: UNCLEAR TIME INDICATIONS REGARDING START AND STOP TIME
     Route: 065
  6. IMOVANE [Suspect]
     Active Substance: ZOPICLONE
     Indication: Product used for unknown indication
     Dosage: UNCLEAR TIME INDICATIONS REGARDING START AND STOP TIME
     Route: 065

REACTIONS (4)
  - Neurodegenerative disorder [Recovered/Resolved with Sequelae]
  - Mental fatigue [Recovered/Resolved with Sequelae]
  - Stress [Recovered/Resolved with Sequelae]
  - Acne [Recovered/Resolved with Sequelae]

NARRATIVE: CASE EVENT DATE: 20030101
